FAERS Safety Report 10552762 (Version 2)
Quarter: 2014Q4

REPORT INFORMATION
  Report Type: Spontaneous
  Country: US (occurrence: US)
  Receive Date: 20141029
  Receipt Date: 20141029
  Transmission Date: 20150529
  Serious: No
  Sender: FDA-Public Use
  Company Number: US-MYLANLABS-2013S1025299

PATIENT
  Age: 74 Year
  Sex: Female

DRUGS (7)
  1. CRESTOR [Concomitant]
     Active Substance: ROSUVASTATIN CALCIUM
     Dosage: UNK
     Route: 048
  2. CARVEDILOL TABLETS, USP [Suspect]
     Active Substance: CARVEDILOL
     Dosage: 12.5 MG,QD
     Route: 048
     Dates: start: 2011, end: 201308
  3. CARVEDILOL TABLETS, USP [Suspect]
     Active Substance: CARVEDILOL
     Indication: CARDIAC FAILURE CONGESTIVE
  4. LANOXIN [Concomitant]
     Active Substance: DIGOXIN
     Dosage: 2007 UNK,UNK
     Route: 048
  5. ASA [Concomitant]
     Active Substance: ASPIRIN
     Dosage: 2007 UNK,UNK
     Route: 048
  6. CARVEDILOL TABLETS, USP [Suspect]
     Active Substance: CARVEDILOL
     Dosage: 6.25 MG,QD
     Route: 048
     Dates: start: 201308, end: 20131105
  7. DIOVAN [Concomitant]
     Active Substance: VALSARTAN
     Dosage: 2007 UNK,UNK
     Route: 048

REACTIONS (1)
  - Hypersensitivity [Recovered/Resolved]

NARRATIVE: CASE EVENT DATE: 201308
